FAERS Safety Report 8765169 (Version 2)
Quarter: 2013Q1

REPORT INFORMATION
  Report Type: Spontaneous
  Country: NL (occurrence: NL)
  Receive Date: 20120903
  Receipt Date: 20130104
  Transmission Date: 20140127
  Serious: Yes (Hospitalization)
  Sender: FDA-Public Use
  Company Number: NL-AMGEN-NLDSP2012055115

PATIENT
  Age: 60 Year
  Sex: Female

DRUGS (12)
  1. NEULASTA [Suspect]
     Indication: PRODUCT USED FOR UNKNOWN INDICATION
     Dosage: 6 MG, Q3WK
     Route: 058
     Dates: start: 20120303
  2. CHEMOTHERAPEUTICS [Concomitant]
     Dosage: UNK
  3. ACENOCOUMAROL [Concomitant]
     Dosage: 1 MG, UNK
  4. METOPROLOL SUCCINATE [Concomitant]
     Dosage: 50 MG, UNK
  5. PRIMPERAN [Concomitant]
     Dosage: 10 MG, 30 PCS
     Dates: start: 20120419
  6. PRIMPERAN [Concomitant]
     Dosage: 10 MG, 30 PCS
     Dates: start: 20120501
  7. ANTIEMETICS AND ANTINAUSEANTS [Concomitant]
     Dosage: 1 PCS UNK
     Dates: start: 20120503
  8. DEXAMETHASONE [Concomitant]
     Dosage: 4 MG, 6 PCS
     Dates: start: 20120422
  9. EMEND                              /01627301/ [Concomitant]
     Dosage: 125 MG, QD
     Dates: start: 20120422
  10. EMEND                              /01627301/ [Concomitant]
     Dosage: 80 MG, BID
     Dates: start: 20120422
  11. ONDANSETRON [Concomitant]
     Dosage: 8 MG, 3 PCS
     Dates: start: 20120421
  12. NIFEDIPINE [Concomitant]
     Dosage: 30 MG, 30PCS
     Dates: start: 20120509

REACTIONS (9)
  - Urinary tract infection [Recovered/Resolved]
  - Weight decreased [Recovered/Resolved]
  - Asthenia [Recovered/Resolved]
  - Back pain [Recovered/Resolved]
  - Nausea [Recovered/Resolved]
  - Vomiting [Recovered/Resolved]
  - Diarrhoea [Recovered/Resolved]
  - Decreased appetite [Recovered/Resolved]
  - Fatigue [Recovered/Resolved]
